FAERS Safety Report 15095523 (Version 2)
Quarter: 2019Q1

REPORT INFORMATION
  Report Type: Report from Study
  Country: US (occurrence: US)
  Receive Date: 20180702
  Receipt Date: 20190205
  Transmission Date: 20190417
  Serious: No
  Sender: FDA-Public Use
  Company Number: US-ROCHE-2146742

PATIENT
  Sex: Female

DRUGS (1)
  1. OCREVUS [Suspect]
     Active Substance: OCRELIZUMAB
     Indication: RELAPSING MULTIPLE SCLEROSIS
     Dosage: SUBSEQUENT DOSE: 16/JAN/2018;03/JUL/2018, 18/DEC/2018
     Route: 065
     Dates: start: 20170718

REACTIONS (2)
  - Herpes zoster [Recovered/Resolved]
  - Ill-defined disorder [Unknown]
